FAERS Safety Report 20015487 (Version 1)
Quarter: 2021Q4

REPORT INFORMATION
  Report Type: Spontaneous
  Country: US (occurrence: None)
  Receive Date: 20211029
  Receipt Date: 20211029
  Transmission Date: 20220303
  Serious: Yes (Hospitalization)
  Sender: FDA-Public Use
  Company Number: None

PATIENT
  Age: 73 Year
  Sex: Male
  Weight: 126.55 kg

DRUGS (2)
  1. AMIODARONE HYDROCHLORIDE [Suspect]
     Active Substance: AMIODARONE HYDROCHLORIDE
     Indication: Atrial fibrillation
     Dates: start: 20210220, end: 20210303
  2. AMIODARONE HYDROCHLORIDE [Suspect]
     Active Substance: AMIODARONE HYDROCHLORIDE
     Dosage: FREQUENCY : 3 TIMES A DAY;?
     Route: 048
     Dates: start: 20210223, end: 20210303

REACTIONS (10)
  - Diffuse alveolar damage [None]
  - Pulmonary toxicity [None]
  - Toxicity to various agents [None]
  - Acute respiratory failure [None]
  - Lung consolidation [None]
  - Drug reaction with eosinophilia and systemic symptoms [None]
  - Pneumonitis [None]
  - Drug hypersensitivity [None]
  - Respiratory depression [None]
  - Rales [None]

NARRATIVE: CASE EVENT DATE: 20210303
